FAERS Safety Report 4886455-7 (Version None)
Quarter: 2006Q1

REPORT INFORMATION
  Report Type: 
  Country: None (occurrence: None)
  Receive Date: 20060120
  Receipt Date: 20051130
  Transmission Date: 20060701
  Serious: Yes (Disabling, Other)
  Sender: FDA-Public Use
  Company Number: US-MERCK-0512USA00100

PATIENT
  Age: 51 Year
  Sex: Female
  Weight: 72 kg

DRUGS (6)
  1. VIOXX [Suspect]
     Indication: ARTHRITIS
     Route: 048
     Dates: start: 20021231, end: 20040901
  2. VIOXX [Suspect]
     Indication: OSTEOPOROSIS
     Route: 048
     Dates: start: 20021231, end: 20040901
  3. LISINOPRIL [Concomitant]
     Route: 065
  4. TRIAMTERENE AND HYDROCHLOROTHIAZIDE [Concomitant]
     Route: 065
  5. SULAR [Concomitant]
     Route: 065
  6. IRON (UNSPECIFIED) [Concomitant]
     Route: 065

REACTIONS (5)
  - CEREBROVASCULAR ACCIDENT [None]
  - DEPRESSION [None]
  - HEADACHE [None]
  - LIMB INJURY [None]
  - UTERINE DISORDER [None]
